FAERS Safety Report 25512836 (Version 5)
Quarter: 2025Q3

REPORT INFORMATION
  Report Type: Spontaneous
  Country: CA (occurrence: CA)
  Receive Date: 20250703
  Receipt Date: 20250908
  Transmission Date: 20251021
  Serious: Yes (Hospitalization, Other)
  Sender: PFIZER
  Company Number: CA-PFIZER INC-202500131699

PATIENT
  Age: 66 Year
  Sex: Male

DRUGS (3)
  1. ABRILADA [Suspect]
     Active Substance: ADALIMUMAB-AFZB
     Indication: Colitis ulcerative
     Route: 058
     Dates: start: 20250424
  2. PREDNISONE [Concomitant]
     Active Substance: PREDNISONE
     Dates: start: 202503
  3. MESALAMINE [Concomitant]
     Active Substance: MESALAMINE

REACTIONS (4)
  - Necrotic lymphadenopathy [Not Recovered/Not Resolved]
  - Infection [Unknown]
  - Central nervous system inflammation [Unknown]
  - Neoplasm malignant [Unknown]
